FAERS Safety Report 5491756-8 (Version None)
Quarter: 2007Q4

REPORT INFORMATION
  Report Type: 
  Country: None (occurrence: None)
  Receive Date: 20071022
  Receipt Date: 20071017
  Transmission Date: 20080405
  Serious: Yes (Hospitalization)
  Sender: FDA-Public Use
  Company Number: US-BRISTOL-MYERS SQUIBB COMPANY-13945381

PATIENT
  Age: 85 Year
  Sex: Male
  Weight: 77 kg

DRUGS (5)
  1. SINEMET [Suspect]
     Indication: PARKINSON'S DISEASE
     Dosage: DOSAGE FORM : 25/100 MG FROM 01-SEP-2007, DOSAGE INCREASED TO TID
     Route: 048
     Dates: start: 20050101
  2. UROXATRAL [Concomitant]
  3. TOPROL-XL [Concomitant]
  4. DEMADEX [Concomitant]
  5. ASPIRIN [Concomitant]

REACTIONS (3)
  - COUGH [None]
  - LARYNGEAL OEDEMA [None]
  - PHARYNGOLARYNGEAL PAIN [None]
